FAERS Safety Report 6029946-8 (Version None)
Quarter: 2009Q1

REPORT INFORMATION
  Report Type: 
  Country: None (occurrence: None)
  Receive Date: 20090107
  Receipt Date: 20090105
  Transmission Date: 20090719
  Serious: Yes (Congenital Anomaly)
  Sender: FDA-Public Use
  Company Number: A0681246A

PATIENT

DRUGS (2)
  1. PAXIL [Suspect]
     Indication: STRESS
     Dosage: 20MG UNKNOWN
     Dates: start: 20020101
  2. VITAMIN TAB [Concomitant]

REACTIONS (6)
  - CONGENITAL ANOMALY [None]
  - CONGENITAL AORTIC STENOSIS [None]
  - DRUG EXPOSURE DURING PREGNANCY [None]
  - HEART DISEASE CONGENITAL [None]
  - MULTIPLE CONGENITAL ABNORMALITIES [None]
  - PULMONARY VALVE STENOSIS CONGENITAL [None]
